FAERS Safety Report 6177788-5 (Version None)
Quarter: 2009Q2

REPORT INFORMATION
  Report Type: 
  Country: None (occurrence: None)
  Receive Date: 20090504
  Receipt Date: 20090106
  Transmission Date: 20091009
  Serious: No
  Sender: FDA-Public Use
  Company Number: US-ALEXION-A200900009

PATIENT
  Sex: Male

DRUGS (13)
  1. SOLIRIS [Suspect]
     Indication: PAROXYSMAL NOCTURNAL HAEMOGLOBINURIA
     Dosage: 600 MG, QW
     Route: 042
     Dates: start: 20080717, end: 20080807
  2. SOLIRIS [Suspect]
     Dosage: 900 MG, Q2W
     Route: 042
     Dates: start: 20080814
  3. COUMADIN [Concomitant]
     Indication: PROPHYLAXIS
     Dosage: 3 MG, QD
     Route: 048
     Dates: start: 20080703
  4. FOLIC ACID [Concomitant]
     Indication: PAROXYSMAL NOCTURNAL HAEMOGLOBINURIA
     Dosage: UNK
     Route: 048
  5. FISH OIL [Concomitant]
     Dosage: 1000 MG, QD
     Route: 048
  6. MULTIVITAMIN                       /00831701/ [Concomitant]
     Dosage: UNK
     Route: 048
  7. SIMVASTATIN [Concomitant]
     Dosage: 20 MG, QD
     Route: 048
  8. LEVOTHYROXINE SODIUM [Concomitant]
     Indication: HYPOTHYROIDISM
     Dosage: 0.112 UG, QD
     Route: 048
  9. LORTAB [Concomitant]
     Dosage: 7.5/500 MG, PRN, TID
  10. ASPIRIN [Concomitant]
     Dosage: 81 MG, QD
     Route: 048
  11. NYSTATIN [Concomitant]
     Indication: STOMATITIS
     Dosage: UNK, PRN, TID
  12. LIDOCAINE [Concomitant]
     Indication: STOMATITIS
     Dosage: UNK, PRN, TID
  13. EMLA                               /00675501/ [Concomitant]
     Dosage: UNK
     Route: 061

REACTIONS (3)
  - ABDOMINAL PAIN [None]
  - DIARRHOEA [None]
  - URINE ODOUR ABNORMAL [None]
